FAERS Safety Report 5376349-5 (Version None)
Quarter: 2007Q3

REPORT INFORMATION
  Report Type: 
  Country: None (occurrence: None)
  Receive Date: 20070702
  Receipt Date: 20070622
  Transmission Date: 20080115
  Serious: Yes (Other)
  Sender: FDA-Public Use
  Company Number: CH-PFIZER INC-2007034127

PATIENT
  Age: 46 Year
  Sex: Male
  Weight: 85 kg

DRUGS (1)
  1. ALDACTONE [Suspect]
     Indication: HEPATIC CIRRHOSIS
     Route: 048

REACTIONS (2)
  - GYNAECOMASTIA [None]
  - HEPATIC NEOPLASM MALIGNANT [None]
